FAERS Safety Report 21476967 (Version 2)
Quarter: 2022Q4

REPORT INFORMATION
  Report Type: Spontaneous
  Country: GB (occurrence: GB)
  Receive Date: 20221019
  Receipt Date: 20221028
  Transmission Date: 20230113
  Serious: Yes (Other)
  Sender: FDA-Public Use
  Company Number: GB-MLMSERVICE-20221005-3837125-1

PATIENT

DRUGS (10)
  1. PREDNISOLONE [Suspect]
     Active Substance: PREDNISOLONE
     Indication: Acquired haemophilia
     Dosage: 1 MG/KG, QD
  2. PREDNISOLONE [Suspect]
     Active Substance: PREDNISOLONE
     Dosage: UNK (DOSE REDUCED)
  3. OBIZUR [Concomitant]
     Active Substance: ANTIHEMOPHILIC FACTOR PORCINE, B-DOMAIN TRUNCATED RECOMBINANT
     Indication: Acquired haemophilia
     Dosage: 100 IU/KG (INITIAL DOSE GIVEN WAS 100 UNITS/KG, WITH SUBSEQUENT DOSES TITRATED ACCORDING TO FVIII LE
  4. NOVOSEVEN [Concomitant]
     Active Substance: COAGULATION FACTOR VIIA RECOMBINANT HUMAN
     Indication: Acquired haemophilia
     Dosage: 9 MG, TID
  5. RITUXIMAB [Concomitant]
     Active Substance: RITUXIMAB
     Indication: Acquired haemophilia
     Dosage: 100 MG, WEEKLY
  6. ALLOPURINOL [Concomitant]
     Active Substance: ALLOPURINOL
  7. TRANEXAMIC ACID [Concomitant]
     Active Substance: TRANEXAMIC ACID
     Indication: Acquired haemophilia
     Dosage: 1 G, TID
  8. FERINJECT [Concomitant]
     Active Substance: FERRIC CARBOXYMALTOSE
     Indication: Anaemia
     Dosage: 2000 MG
     Route: 042
  9. DOXAZOSIN [Concomitant]
     Active Substance: DOXAZOSIN MESYLATE
  10. ERYTHROPOIETIN [Concomitant]
     Active Substance: ERYTHROPOIETIN
     Indication: Anaemia
     Dosage: 300 IU/KG, QD

REACTIONS (2)
  - Delirium [Unknown]
  - Cognitive disorder [Unknown]
